FAERS Safety Report 23521323 (Version 1)
Quarter: 2024Q1

REPORT INFORMATION
  Report Type: Spontaneous
  Country: US (occurrence: US)
  Receive Date: 20240214
  Receipt Date: 20240214
  Transmission Date: 20240409
  Serious: No
  Sender: FDA-Public Use
  Company Number: US-TEVA-VS-3141808

PATIENT
  Age: 86 Year
  Sex: Female
  Weight: 48.9 kg

DRUGS (2)
  1. ALBUTEROL SULFATE [Suspect]
     Active Substance: ALBUTEROL SULFATE
     Indication: Pneumonia
     Dosage: 2 PUFFS EVERY 4-6 HOURS AS NEEDED
     Route: 065
     Dates: start: 20231113
  2. UNSPECIFIED INGREDIENT [Concomitant]
     Active Substance: UNSPECIFIED INGREDIENT

REACTIONS (9)
  - Tongue discomfort [Not Recovered/Not Resolved]
  - Agitation [Unknown]
  - Palpitations [Unknown]
  - Device occlusion [Unknown]
  - Malaise [Unknown]
  - Wrong device used [Unknown]
  - Musculoskeletal discomfort [Unknown]
  - Feeling abnormal [Unknown]
  - Swollen tongue [Not Recovered/Not Resolved]
